FAERS Safety Report 23626578 (Version 1)
Quarter: 2024Q1

REPORT INFORMATION
  Report Type: Spontaneous
  Country: US (occurrence: US)
  Receive Date: 20240313
  Receipt Date: 20240313
  Transmission Date: 20240410
  Serious: Yes (Hospitalization)
  Sender: FDA-Public Use
  Company Number: US-DRL-USA-LIT/USA/24/0004141

PATIENT
  Age: 75 Year
  Sex: Female

DRUGS (7)
  1. METOPROLOL [Suspect]
     Active Substance: METOPROLOL
     Indication: Atrial flutter
     Route: 048
  2. RIFAMPIN [Suspect]
     Active Substance: RIFAMPIN
     Indication: Mycobacterium avium complex infection
  3. ETHAMBUTOL [Suspect]
     Active Substance: ETHAMBUTOL HYDROCHLORIDE
     Indication: Mycobacterium avium complex infection
  4. AZITHROMYCIN [Suspect]
     Active Substance: AZITHROMYCIN
     Indication: Mycobacterium avium complex infection
  5. AMIODARONE [Suspect]
     Active Substance: AMIODARONE
     Indication: Atrial flutter
  6. PROPOFOL [Concomitant]
     Active Substance: PROPOFOL
     Indication: Sedation
  7. FENTANYL [Concomitant]
     Active Substance: FENTANYL\FENTANYL CITRATE
     Indication: Analgesic therapy

REACTIONS (2)
  - Condition aggravated [Unknown]
  - Drug ineffective [Unknown]
